FAERS Safety Report 24889790 (Version 2)
Quarter: 2025Q1

REPORT INFORMATION
  Report Type: Other
  Country: JP (occurrence: JP)
  Receive Date: 20250127
  Receipt Date: 20250214
  Transmission Date: 20250408
  Serious: Yes (Other)
  Sender: Phathom Pharmaceuticals
  Company Number: JP-PHATHOM PHARMACEUTICALS INC.-2025PHT00125

PATIENT
  Age: 73 Year
  Sex: Female

DRUGS (5)
  1. VONOPRAZAN FUMARATE [Suspect]
     Active Substance: VONOPRAZAN FUMARATE
     Indication: Dyspepsia
     Dosage: 20 MG, 1X/DAY
     Route: 048
     Dates: start: 20240808, end: 20240818
  2. CANDESARTAN [Suspect]
     Active Substance: CANDESARTAN
     Indication: Hypertension
     Dosage: 8 MG, 1X/DAY
     Route: 048
     Dates: start: 20210303, end: 20250109
  3. BENIDIPINE HYDROCHLORIDE [Suspect]
     Active Substance: BENIDIPINE HYDROCHLORIDE
     Indication: Hypertension
     Dosage: 4 MG, 1X/DAY
     Route: 048
     Dates: start: 20210303, end: 20250109
  4. SULPIRIDE [Suspect]
     Active Substance: SULPIRIDE
     Indication: Abdominal discomfort
     Dosage: 50 MG, 1X/DAY
     Route: 048
     Dates: start: 20210303, end: 20250109
  5. SULPIRIDE [Suspect]
     Active Substance: SULPIRIDE
     Indication: Feeling abnormal

REACTIONS (3)
  - Cerebral infarction [Unknown]
  - Dehydration [Unknown]
  - Abdominal discomfort [Recovered/Resolved]

NARRATIVE: CASE EVENT DATE: 20240808
